FAERS Safety Report 4895721-0 (Version None)
Quarter: 2005Q4

REPORT INFORMATION
  Report Type: 
  Country: None (occurrence: None)
  Receive Date: 20051223
  Receipt Date: 20050915
  Transmission Date: 20060501
  Serious: No
  Sender: FDA-Public Use
  Company Number: 05P-163-0308898-00

PATIENT
  Age: 40 Year
  Sex: Female
  Weight: 127 kg

DRUGS (14)
  1. HUMIRA [Suspect]
     Indication: RHEUMATOID ARTHRITIS
     Dosage: 40 MG, 1 IN 1 WK, SUBCUTANEOUS; 40 MG, 1 IN 2 WK, SUBCUTANEOUS
     Route: 058
     Dates: start: 20030101, end: 20050401
  2. HUMIRA [Suspect]
     Indication: RHEUMATOID ARTHRITIS
     Dosage: 40 MG, 1 IN 1 WK, SUBCUTANEOUS; 40 MG, 1 IN 2 WK, SUBCUTANEOUS
     Route: 058
     Dates: start: 20050501, end: 20050910
  3. INSULIN LISPRO [Concomitant]
  4. LEXAPRIL [Concomitant]
  5. ATENOLOL [Concomitant]
  6. LOSARTAN POTASSIUM [Concomitant]
  7. PANTOPRAZOLE [Concomitant]
  8. LEFLUNOMIDE [Concomitant]
  9. ATORVASTATIN CALCIUM [Concomitant]
  10. ZOCOR [Concomitant]
  11. ESTROGENS CONJUGATED [Concomitant]
  12. ANTIDEPRESSANTS [Concomitant]
  13. BUPROPION HYDROCHLORIDE [Concomitant]
  14. CLONAZEPAM [Concomitant]

REACTIONS (4)
  - ARTHRITIS [None]
  - CONDITION AGGRAVATED [None]
  - NODULE [None]
  - SKIN DISCOLOURATION [None]
